FAERS Safety Report 7206451-4 (Version None)
Quarter: 2010Q4

REPORT INFORMATION
  Report Type: 
  Country: None (occurrence: None)
  Receive Date: 20101217
  Receipt Date: 20101130
  Transmission Date: 20110411
  Serious: Yes (Death, Hospitalization)
  Sender: FDA-Public Use
  Company Number: 2010120025

PATIENT
  Age: 68 Year
  Sex: Male

DRUGS (8)
  1. TORSEMIDE [Suspect]
     Indication: CARDIAC FAILURE
     Dosage: ORAL
  2. CARVEDILOL [Suspect]
     Indication: CARDIAC FAILURE
     Dosage: ORAL
     Route: 048
  3. LASIX [Suspect]
     Indication: CARDIAC FAILURE
     Dosage: ORAL
     Route: 048
  4. ALLOPURINOL [Suspect]
     Indication: CARDIAC FAILURE
     Dosage: ORAL
     Route: 048
  5. DIOVAN [Concomitant]
  6. MUCOSTA (REBAMIPIDE) [Concomitant]
  7. WARFARIN SODIUM [Concomitant]
  8. DIGOXIN [Concomitant]

REACTIONS (12)
  - BLOOD BILIRUBIN INCREASED [None]
  - BLOOD CREATINE INCREASED [None]
  - BLOOD UREA INCREASED [None]
  - CARDIAC FAILURE [None]
  - CONDITION AGGRAVATED [None]
  - DRUG RASH WITH EOSINOPHILIA AND SYSTEMIC SYMPTOMS [None]
  - LYMPHOCYTE PERCENTAGE DECREASED [None]
  - NEUTROPHIL PERCENTAGE DECREASED [None]
  - PNEUMONITIS [None]
  - PULMONARY CONGESTION [None]
  - RED BLOOD CELL COUNT DECREASED [None]
  - SCAB [None]
